FAERS Safety Report 12182672 (Version 1)
Quarter: 2016Q1

REPORT INFORMATION
  Report Type: Spontaneous
  Country: US (occurrence: None)
  Receive Date: 20160314
  Receipt Date: 20160314
  Transmission Date: 20160526
  Serious: Yes (Death, Other)
  Sender: FDA-Public Use
  Company Number: None

PATIENT
  Age: 28 Year
  Sex: Female
  Weight: 63.5 kg

DRUGS (3)
  1. BUSPIRONE [Suspect]
     Active Substance: BUSPIRONE HYDROCHLORIDE
     Indication: ANXIETY
     Dosage: ONE TWICE DAILY TWICE DAILY TAKEN BY MOUTH
     Route: 048
  2. CHANTIX [Concomitant]
     Active Substance: VARENICLINE TARTRATE
  3. ALPRAZOLAM. [Suspect]
     Active Substance: ALPRAZOLAM
     Indication: ANXIETY
     Dosage: PRN AS NEEDED TAKEN BY MOUTH
     Route: 048

REACTIONS (4)
  - Abnormal behaviour [None]
  - Completed suicide [None]
  - Physical assault [None]
  - Hostility [None]

NARRATIVE: CASE EVENT DATE: 20150727
